FAERS Safety Report 18579557 (Version 1)
Quarter: 2020Q4

REPORT INFORMATION
  Report Type: Spontaneous
  Country: CN (occurrence: CN)
  Receive Date: 20201204
  Receipt Date: 20201204
  Transmission Date: 20210114
  Serious: Yes (Other)
  Sender: FDA-Public Use
  Company Number: CN-PFIZER INC-2020471712

PATIENT

DRUGS (2)
  1. METOPROLOL. [Interacting]
     Active Substance: METOPROLOL
  2. VIZIMPRO [Suspect]
     Active Substance: DACOMITINIB

REACTIONS (3)
  - Drug interaction [Not Recovered/Not Resolved]
  - Jaundice [Not Recovered/Not Resolved]
  - Liver injury [Unknown]
